FAERS Safety Report 22097510 (Version 1)
Quarter: 2023Q1

REPORT INFORMATION
  Report Type: Spontaneous
  Country: IN (occurrence: IN)
  Receive Date: 20230315
  Receipt Date: 20230315
  Transmission Date: 20230418
  Serious: Yes (Death, Life-Threatening, Hospitalization)
  Sender: FDA-Public Use
  Company Number: IN-MYLANLABS-2023M1026144

PATIENT
  Age: 18 Year
  Sex: Female

DRUGS (9)
  1. DOPAMINE [Suspect]
     Active Substance: DOPAMINE HYDROCHLORIDE
     Indication: Thrombosis with thrombocytopenia syndrome
     Dosage: UNK; INFUSION AT 5 ML/HOUR RATE
     Route: 042
     Dates: start: 202106
  2. DOPAMINE [Suspect]
     Active Substance: DOPAMINE HYDROCHLORIDE
     Indication: Hypotension
  3. HEPARIN [Suspect]
     Active Substance: HEPARIN SODIUM
     Indication: Thrombosis with thrombocytopenia syndrome
     Dosage: 5000 INTERNATIONAL UNIT, Q8H
     Route: 065
     Dates: start: 202106
  4. NOREPINEPHRINE [Suspect]
     Active Substance: NOREPINEPHRINE
     Indication: Thrombosis with thrombocytopenia syndrome
     Dosage: UNK
     Route: 065
     Dates: start: 202106
  5. LEVETIRACETAM [Suspect]
     Active Substance: LEVETIRACETAM
     Indication: Thrombosis with thrombocytopenia syndrome
     Dosage: 500 MILLIGRAM, BID; INFUSION
     Route: 042
     Dates: start: 202106
  6. PIPERACILLIN AND TAZOBACTAM [Suspect]
     Active Substance: PIPERACILLIN SODIUM\TAZOBACTAM SODIUM
     Indication: Thrombosis with thrombocytopenia syndrome
     Dosage: 500 MILLIGRAM, TID
     Route: 065
     Dates: start: 202106
  7. MANNITOL [Suspect]
     Active Substance: MANNITOL
     Indication: Thrombosis with thrombocytopenia syndrome
     Dosage: 100 MILLIGRAM, QD; INFUSION
     Route: 042
     Dates: start: 202106
  8. FOLVITE [Suspect]
     Active Substance: FOLIC ACID
     Indication: Thrombosis with thrombocytopenia syndrome
     Dosage: 10 MILLIGRAM, QD
     Route: 065
     Dates: start: 202106
  9. VITAMIN B12 [Suspect]
     Active Substance: CYANOCOBALAMIN
     Indication: Thrombosis with thrombocytopenia syndrome
     Dosage: UNK
     Route: 065
     Dates: start: 202106

REACTIONS (2)
  - Brain death [Fatal]
  - Drug ineffective [Unknown]

NARRATIVE: CASE EVENT DATE: 20210601
